FAERS Safety Report 8882397 (Version 1)
Quarter: 2012Q4

REPORT INFORMATION
  Report Type: 
  Country: US (occurrence: US)
  Receive Date: 20121102
  Receipt Date: 20121102
  Transmission Date: 20130627
  Serious: Yes (Other)
  Sender: FDA-Public Use
  Company Number: US-BAYER-2012-115071

PATIENT
  Sex: Female

DRUGS (1)
  1. YASMIN [Suspect]
     Indication: ACNE

REACTIONS (4)
  - Cholecystectomy [None]
  - Pain [None]
  - Injury [None]
  - Pain [None]
